FAERS Safety Report 21968789 (Version 2)
Quarter: 2024Q2

REPORT INFORMATION
  Report Type: Spontaneous
  Country: US (occurrence: US)
  Receive Date: 20230208
  Receipt Date: 20240521
  Transmission Date: 20240716
  Serious: Yes (Other)
  Sender: FDA-Public Use
  Company Number: US-MYLANLABS-2023M1013039

PATIENT
  Sex: Male

DRUGS (13)
  1. VALSARTAN [Suspect]
     Active Substance: VALSARTAN
     Indication: Hypertension
     Dosage: UNK
     Route: 065
  2. VALSARTAN [Suspect]
     Active Substance: VALSARTAN
     Dosage: 320 MILLIGRAM
     Route: 065
     Dates: start: 20121105, end: 20141011
  3. FLUOROURACIL\LEUCOVORIN CALCIUM\OXALIPLATIN [Concomitant]
     Active Substance: FLUOROURACIL\LEUCOVORIN CALCIUM\OXALIPLATIN
     Dosage: UNK
     Route: 065
  4. BEVACIZUMAB [Concomitant]
     Active Substance: BEVACIZUMAB
     Dosage: UNK
     Route: 065
     Dates: start: 20210820, end: 20211217
  5. ALLOPURINOL [Concomitant]
     Active Substance: ALLOPURINOL
     Dosage: 100 MILLIGRAM, QD (DAILY)
     Route: 048
  6. ASPIRIN [Concomitant]
     Active Substance: ASPIRIN
     Dosage: UNK
     Route: 048
  7. ATORVASTATIN [Concomitant]
     Active Substance: ATORVASTATIN
     Dosage: 80 MILLIGRAM
     Route: 048
  8. CARVEDILOL [Concomitant]
     Active Substance: CARVEDILOL
     Dosage: 25 MILLIGRAM, BID (2 (TWO) TIMES A DAY WITH MEALS)
     Route: 048
  9. DULAGLUTIDE [Concomitant]
     Active Substance: DULAGLUTIDE
     Dosage: UNK, QW (INJECT UNDER THE SKIN ONCE A WEEK,)
     Route: 065
  10. EMPAGLIFLOZIN [Concomitant]
     Active Substance: EMPAGLIFLOZIN
     Dosage: 12.5 MILLIGRAM, BID (12.5 MG 2 (TWO) TIMES A DAY)
     Route: 065
  11. HYDRALAZINE [Concomitant]
     Active Substance: HYDRALAZINE HYDROCHLORIDE
     Dosage: 10 MILLIGRAM (TAKE 10 MG BY MOUTH)
     Route: 048
  12. NIFEDIPINE [Concomitant]
     Active Substance: NIFEDIPINE
     Dosage: 90 MILLIGRAM, QD (DAILY)
     Route: 048
  13. VALSARTAN AND HYDROCHLOROTHIAZIDE [Concomitant]
     Active Substance: HYDROCHLOROTHIAZIDE\VALSARTAN
     Dosage: 1 DOSAGE FORM, QD (DAILY)
     Route: 065

REACTIONS (1)
  - Colorectal cancer [Unknown]
